FAERS Safety Report 7930202-9 (Version None)
Quarter: 2011Q4

REPORT INFORMATION
  Report Type: 
  Country: None (occurrence: None)
  Receive Date: 20111117
  Receipt Date: 20110828
  Transmission Date: 20120403
  Serious: Yes (Life-Threatening)
  Sender: FDA-Public Use
  Company Number: GB-DEXPHARM-20111277

PATIENT
  Age: 65 Year
  Sex: Male

DRUGS (8)
  1. CHLORHEXIDINE GLUCONATE [Suspect]
     Indication: THERAPEUTIC PROCEDURE
     Dosage: TOPICAL
     Route: 061
     Dates: start: 20110808, end: 20110808
  2. METRONIDAZOLE [Concomitant]
  3. BUPIVACAINE HCL [Concomitant]
  4. LANSOPRAZOLE [Concomitant]
  5. LIDOCAINE [Concomitant]
  6. ROCURONIUM (BATCH: 011068) [Suspect]
     Indication: ANAESTHESIA
     Dosage: 50 MG MILLIGRAM(S) INTRAVENOUS (NOT OTHERWISE SPECIFIED)
     Route: 042
     Dates: start: 20110808, end: 20110808
  7. THIAMINE HCL [Concomitant]
  8. VITAMIN B COMPLEX STRONG [Concomitant]

REACTIONS (1)
  - CIRCULATORY COLLAPSE [None]
